FAERS Safety Report 7786844-7 (Version None)
Quarter: 2011Q3

REPORT INFORMATION
  Report Type: 
  Country: None (occurrence: None)
  Receive Date: 20110929
  Receipt Date: 20110926
  Transmission Date: 20111222
  Serious: Yes (Hospitalization)
  Sender: FDA-Public Use
  Company Number: IT-MERCK-1109ITA00034

PATIENT
  Age: 70 Year
  Sex: Male

DRUGS (3)
  1. VYTORIN [Suspect]
     Indication: DYSLIPIDAEMIA
     Route: 048
     Dates: start: 20070101, end: 20110913
  2. METFORMIN HCL [Suspect]
     Indication: TYPE 2 DIABETES MELLITUS
     Route: 048
     Dates: start: 20070101, end: 20110913
  3. NIMESULIDE [Concomitant]
     Indication: ARTHRALGIA
     Route: 048
     Dates: start: 20070101, end: 20110913

REACTIONS (1)
  - RENAL FAILURE ACUTE [None]
